FAERS Safety Report 8461678-9 (Version None)
Quarter: 2012Q2

REPORT INFORMATION
  Report Type: 
  Country: None (occurrence: None)
  Receive Date: 20120323
  Receipt Date: 20111006
  Transmission Date: 20120825
  Serious: Yes (Hospitalization)
  Sender: FDA-Public Use
  Company Number: 163-21880-11100955

PATIENT
  Age: 58 Year
  Sex: Male

DRUGS (9)
  1. PREDNISONE [Concomitant]
  2. ASPIRIN [Concomitant]
  3. DEXAMETHASONE [Concomitant]
  4. BACTRIM [Suspect]
     Indication: PRODUCT USED FOR UNKNOWN INDICATION
     Dosage: UNK
  5. PROTONIX (PANTOPRAZOLE) (UNKNOWN) [Concomitant]
  6. ACYCLOVIR (ACICLOVIR) (UNKNOWN) [Concomitant]
  7. REVLIMID [Suspect]
     Indication: MULTIPLE MYELOMA
     Dosage: 10 MG, DAILY X 21 DAYS, PO 25 MG, DAILY X 21 DAYS, PO 25 MG, DAILY X 14 DAYS, PO
     Route: 048
     Dates: start: 20110401
  8. REVLIMID [Suspect]
     Indication: MULTIPLE MYELOMA
     Dosage: 10 MG, DAILY X 21 DAYS, PO 25 MG, DAILY X 21 DAYS, PO 25 MG, DAILY X 14 DAYS, PO
     Route: 048
     Dates: start: 20110414
  9. REVLIMID [Suspect]
     Indication: MULTIPLE MYELOMA
     Dosage: 10 MG, DAILY X 21 DAYS, PO 25 MG, DAILY X 21 DAYS, PO 25 MG, DAILY X 14 DAYS, PO
     Route: 048
     Dates: start: 20110601

REACTIONS (1)
  - PNEUMONIA [None]
